FAERS Safety Report 7633562 (Version 2)
Quarter: 2016Q2

REPORT INFORMATION
  Report Type: Report from Study
  Country: ES (occurrence: MZ)
  Receive Date: 20101019
  Receipt Date: 20160406
  Transmission Date: 20160815
  Serious: Yes (Congenital Anomaly, Other)
  Sender: FDA-Public Use
  Company Number: ES-ROCHE-578601

PATIENT

DRUGS (1)
  1. PYRIMETHAMINE/SULFADOXINE [Suspect]
     Active Substance: PYRIMETHAMINE\SULFADOXINE
     Indication: MALARIA PROPHYLAXIS
     Dosage: (3 TAB) 1500 MG SULFADOXINE,75 MG PYRIMETHAMINE, TWICE FROM 2ND TRIMESTER, AT LEAST 1 MONTH APART
     Route: 064

REACTIONS (6)
  - Low birth weight baby [Unknown]
  - Malaria [Unknown]
  - Anaemia [Unknown]
  - Stillbirth [Unknown]
  - Plasmodium falciparum infection [Unknown]
  - Spina bifida [Unknown]
